FAERS Safety Report 21314993 (Version 3)
Quarter: 2022Q4

REPORT INFORMATION
  Report Type: Report from Study
  Country: ZA (occurrence: ZA)
  Receive Date: 20220909
  Receipt Date: 20221017
  Transmission Date: 20230113
  Serious: Yes (Other)
  Sender: FDA-Public Use
  Company Number: US-GILEAD-2022-0596030

PATIENT
  Age: 22 Year
  Sex: Female

DRUGS (4)
  1. EMTRICITABINE\TENOFOVIR [Suspect]
     Active Substance: EMTRICITABINE\TENOFOVIR
     Indication: Prophylaxis against HIV infection
     Dosage: 1 DOSAGE FORM, QD
     Route: 048
     Dates: start: 20220726, end: 20220816
  2. NUR ISTERATE [Concomitant]
  3. DMPA [Concomitant]
     Dosage: UNK
     Dates: start: 2016
  4. NET-EN [Concomitant]

REACTIONS (6)
  - Suicidal ideation [Recovered/Resolved]
  - Temporomandibular joint syndrome [Recovered/Resolved]
  - Headache [Recovered/Resolved]
  - Paraesthesia [Recovered/Resolved]
  - Dissociation [Recovered/Resolved]
  - Depression [Recovered/Resolved]

NARRATIVE: CASE EVENT DATE: 20220726
